FAERS Safety Report 13350140 (Version 1)
Quarter: 2017Q1

REPORT INFORMATION
  Report Type: Spontaneous
  Country: US (occurrence: US)
  Receive Date: 20170317
  Receipt Date: 20170317
  Transmission Date: 20170429
  Serious: No
  Sender: FDA-Public Use
  Company Number: None

PATIENT
  Age: 56 Year
  Sex: Female

DRUGS (1)
  1. CAPECITABINE 500MG ACCORD HEALTHCARE, INC [Suspect]
     Active Substance: CAPECITABINE
     Indication: NEOPLASM MALIGNANT
     Dosage: 500 MG TAKE 1 TABLET TWICE DAILY FOR 14 DAYS THEN OFF FOR 7 DAYS ORALLY
     Route: 048
     Dates: start: 20160818

REACTIONS (2)
  - Blister [None]
  - Erythema [None]

NARRATIVE: CASE EVENT DATE: 20170315
